FAERS Safety Report 4799901-4 (Version None)
Quarter: 2005Q4

REPORT INFORMATION
  Report Type: 
  Country: None (occurrence: None)
  Receive Date: 20051017
  Receipt Date: 20050901
  Transmission Date: 20060501
  Serious: Yes (Other)
  Sender: FDA-Public Use
  Company Number: PHBS2005DE13351

PATIENT
  Age: 69 Year
  Sex: Male

DRUGS (3)
  1. ZOLEDRONATE [Suspect]
     Route: 042
     Dates: start: 20021101
  2. RADIOTHERAPY [Concomitant]
     Indication: MYELODYSPLASTIC SYNDROME
  3. PAMIDRONATE DISODIUM [Suspect]
     Dosage: UNK, UNK
     Route: 042
     Dates: start: 20020401, end: 20021101

REACTIONS (8)
  - ACTINOMYCOSIS [None]
  - BONE TRIMMING [None]
  - IMPAIRED HEALING [None]
  - LIP AND/OR ORAL CAVITY CANCER [None]
  - OSTEOMYELITIS CHRONIC [None]
  - OSTEONECROSIS [None]
  - PLASTIC SURGERY [None]
  - WOUND DEBRIDEMENT [None]
